FAERS Safety Report 17508925 (Version 1)
Quarter: 2020Q1

REPORT INFORMATION
  Report Type: Spontaneous
  Country: JP (occurrence: JP)
  Receive Date: 20200306
  Receipt Date: 20200306
  Transmission Date: 20200409
  Serious: Yes (Death, Other)
  Sender: FDA-Public Use
  Company Number: JP-PFIZER INC-2020096835

PATIENT
  Age: 65 Year
  Sex: Female
  Weight: 48.4 kg

DRUGS (25)
  1. MEROPENEM TOWA [Concomitant]
     Dosage: UNK
     Route: 041
  2. ACICLOVIR TEVA [Concomitant]
     Active Substance: ACYCLOVIR
     Dosage: UNK
     Route: 041
  3. SODIUM CHLORIDE. [Concomitant]
     Active Substance: SODIUM CHLORIDE
     Dosage: UNK
  4. KCL [Concomitant]
     Active Substance: POTASSIUM CHLORIDE
     Dosage: UNK
  5. MAGNESIUM SULFATE. [Concomitant]
     Active Substance: MAGNESIUM SULFATE
     Dosage: UNK
  6. NOVOLIN N [Concomitant]
     Active Substance: INSULIN HUMAN
     Dosage: UNK
  7. URSO [Concomitant]
     Active Substance: URSODIOL
     Dosage: UNK
  8. OMEPRAZOLE. [Concomitant]
     Active Substance: OMEPRAZOLE
     Dosage: UNK
  9. GABEXATE MESILATE [Concomitant]
     Active Substance: GABEXATE MESYLATE
     Dosage: UNK
  10. GRAN [Concomitant]
     Active Substance: FILGRASTIM
     Dosage: UNK
  11. MEDLENIK [Concomitant]
     Active Substance: CUPRIC SULFATE\FERRIC CHLORIDE\MANGANESE CHLORIDE\POTASSIUM IODIDE\ZINC SULFATE
     Dosage: UNK
  12. VFEND [Suspect]
     Active Substance: VORICONAZOLE
     Indication: FUNGAL INFECTION
     Dosage: 68 MG, 2X/DAY
     Route: 041
     Dates: start: 20200110, end: 20200118
  13. SAMTIREL [Suspect]
     Active Substance: ATOVAQUONE
     Indication: PNEUMOCYSTIS JIROVECII PNEUMONIA
     Dosage: 10 ML, 1X/DAY
     Route: 048
     Dates: start: 20200106, end: 20200118
  14. AMBISOME [Suspect]
     Active Substance: AMPHOTERICIN B
     Indication: FUNGAL INFECTION
     Dosage: 124 MG, 1X/DAY
     Route: 041
     Dates: start: 20200117, end: 20200124
  15. PROGRAF [Concomitant]
     Active Substance: TACROLIMUS
     Dosage: UNK
  16. SOLU-MEDROL [Concomitant]
     Active Substance: METHYLPREDNISOLONE SODIUM SUCCINATE
     Dosage: UNK
     Route: 042
  17. MULTAMIN [VITAMINS NOS] [Concomitant]
     Dosage: UNK
  18. KAYTWO N [Concomitant]
     Active Substance: MENATETRENONE
     Dosage: UNK
     Route: 042
  19. PIARLE [Concomitant]
     Active Substance: LACTULOSE
     Dosage: UNK
  20. GENTACIN [Concomitant]
     Active Substance: GENTAMICIN SULFATE
     Dosage: UNK
  21. VANCOMYCIN HYDROCHLORIDE. [Concomitant]
     Active Substance: VANCOMYCIN HYDROCHLORIDE
     Dosage: UNK
     Route: 041
  22. HISHIPHAGEN C [CYSTEINE HYDROCHLORIDE;GLYCINE;GLYCYRRHIZIC ACID, AMMON [Concomitant]
     Dosage: UNK
     Route: 042
  23. ACELIO [Concomitant]
     Active Substance: ACETAMINOPHEN
     Dosage: UNK
     Route: 042
  24. AMINOLEBAN [Concomitant]
     Active Substance: AMINO ACIDS, SOURCE UNSPECIFIED
     Dosage: UNK
     Route: 041
  25. ONOACT [Concomitant]
     Active Substance: LANDIOLOL HYDROCHLORIDE
     Dosage: UNK
     Route: 041

REACTIONS (5)
  - Altered state of consciousness [Fatal]
  - Bacteraemia [Fatal]
  - Toxic epidermal necrolysis [Recovering/Resolving]
  - Off label use [Unknown]
  - Pneumonia [Fatal]

NARRATIVE: CASE EVENT DATE: 20200117
